FAERS Safety Report 19452100 (Version 1)
Quarter: 2021Q2

REPORT INFORMATION
  Report Type: Report from Study
  Country: CN (occurrence: CN)
  Receive Date: 20210623
  Receipt Date: 20210623
  Transmission Date: 20210717
  Serious: Yes (Hospitalization)
  Sender: FDA-Public Use
  Company Number: CN-KARYOPHARM-2021KPT000825

PATIENT
  Age: 52 Year
  Sex: Female

DRUGS (6)
  1. GEMCITABINE. [Suspect]
     Active Substance: GEMCITABINE
     Dosage: 0.84 G
     Route: 042
     Dates: start: 20210311, end: 20210311
  2. OXALIPLATIN. [Suspect]
     Active Substance: OXALIPLATIN
     Indication: ANGIOCENTRIC LYMPHOMA
     Dosage: 201.5 MG (ON DAY1; 21?DAY AS A TREATMENT CYCLE)
     Route: 042
     Dates: start: 20201228
  3. SELINEXOR [Suspect]
     Active Substance: SELINEXOR
     Indication: ANGIOCENTRIC LYMPHOMA
     Dosage: 60 MG (ON DAY2 AND DAY9; 21?DAY AS A TREATMENT CYCLE)
     Route: 048
     Dates: start: 20201229
  4. SELINEXOR [Suspect]
     Active Substance: SELINEXOR
     Dosage: 40 MG
     Route: 048
     Dates: end: 20210528
  5. GEMCITABINE. [Suspect]
     Active Substance: GEMCITABINE
     Indication: ANGIOCENTRIC LYMPHOMA
     Dosage: 1.55 G (ON DAY1 AND DAY8; 21?DAY AS A TREATMENT CYCLE)
     Route: 042
     Dates: start: 20201228
  6. OXALIPLATIN. [Suspect]
     Active Substance: OXALIPLATIN
     Dosage: 149 MG
     Route: 042
     Dates: end: 20210304

REACTIONS (1)
  - Anaemia [Not Recovered/Not Resolved]

NARRATIVE: CASE EVENT DATE: 20210604
